FAERS Safety Report 4617613-4 (Version None)
Quarter: 2005Q1

REPORT INFORMATION
  Report Type: 
  Country: None (occurrence: None)
  Receive Date: 20050324
  Receipt Date: 20050127
  Transmission Date: 20050727
  Serious: Yes (Life-Threatening, Hospitalization, Other)
  Sender: FDA-Public Use
  Company Number: US-MERCK-0501USA04560

PATIENT
  Age: 56 Year
  Sex: Male
  Weight: 98 kg

DRUGS (12)
  1. ZETIA [Suspect]
     Indication: HYPERCHOLESTEROLAEMIA
     Route: 048
     Dates: start: 20041216, end: 20050117
  2. ZETIA [Suspect]
     Indication: DYSLIPIDAEMIA
     Route: 048
     Dates: start: 20041216, end: 20050117
  3. HYZAAR [Concomitant]
     Indication: HYPERTENSION
     Route: 048
     Dates: start: 20040101
  4. SYNTHROID [Concomitant]
     Indication: HYPOTHYROIDISM
     Route: 048
     Dates: start: 20020101
  5. ZOCOR [Suspect]
     Indication: HYPERCHOLESTEROLAEMIA
     Route: 048
     Dates: start: 20020101, end: 20050117
  6. ZOCOR [Suspect]
     Route: 048
     Dates: start: 20050125
  7. ZOCOR [Suspect]
     Indication: DYSLIPIDAEMIA
     Route: 048
     Dates: start: 20020101, end: 20050117
  8. ZOCOR [Suspect]
     Route: 048
     Dates: start: 20050125
  9. TRICOR [Concomitant]
     Indication: BLOOD TRIGLYCERIDES INCREASED
     Route: 048
     Dates: start: 20020101, end: 20050117
  10. OMEGA-3 MARINE TRIGLYCERIDES [Concomitant]
     Route: 065
  11. VITAMINS (UNSPECIFIED) [Concomitant]
     Route: 065
  12. COZAAR [Concomitant]
     Indication: HYPERTENSION
     Route: 048
     Dates: start: 20020101

REACTIONS (5)
  - CARDIAC FAILURE CONGESTIVE [None]
  - HYPERGLYCAEMIA [None]
  - ILEUS [None]
  - PANCREATITIS ACUTE [None]
  - PNEUMONIA [None]
